FAERS Safety Report 7245308-X (Version None)
Quarter: 2011Q1

REPORT INFORMATION
  Report Type: 
  Country: None (occurrence: None)
  Receive Date: 20110126
  Receipt Date: 20110124
  Transmission Date: 20110831
  Serious: Yes (Hospitalization)
  Sender: FDA-Public Use
  Company Number: GB-ROCHE-746215

PATIENT
  Sex: Female
  Weight: 95 kg

DRUGS (12)
  1. DOCETAXEL [Suspect]
     Dosage: PERMANENTLY DISCONTINUED. DOSE FORM: VIALS
     Route: 042
     Dates: start: 20100805, end: 20101115
  2. CARBOPLATIN [Suspect]
     Dosage: PERMANENTLY DISCONTINUED. DOSE FORM: VIALS
     Route: 042
     Dates: start: 20100805, end: 20101115
  3. METOCLOPRAMIDE [Concomitant]
     Dates: start: 20100805
  4. DICLOFENAC [Concomitant]
     Dates: start: 20101025
  5. CO-CODAMOL [Concomitant]
     Dates: start: 20101025
  6. BEVACIZUMAB [Suspect]
     Dosage: AS PER PRTOCOL: DOSE: 15 MG/KG. PERMANENTLY DISCONTINUED.
     Route: 042
     Dates: start: 20100805, end: 20101115
  7. DEXAMETHASONE [Suspect]
     Route: 065
  8. TRASTUZUMAB [Suspect]
     Route: 042
     Dates: start: 20100804
  9. LOPERAMIDE [Concomitant]
     Dates: start: 20100811
  10. ONDANSETRON [Concomitant]
     Dates: start: 20100812
  11. RAMIPRIL [Concomitant]
     Dates: start: 20101102
  12. TRASTUZUMAB [Suspect]
     Dosage: PERMANENTLY DISCONTINUED. DOSE FORM: VIALS
     Route: 042
     Dates: end: 20101115

REACTIONS (1)
  - GASTRIC ULCER [None]
